FAERS Safety Report 16344840 (Version 2)
Quarter: 2019Q2

REPORT INFORMATION
  Report Type: Spontaneous
  Country: PT (occurrence: PT)
  Receive Date: 20190522
  Receipt Date: 20190613
  Transmission Date: 20190711
  Serious: Yes (Hospitalization, Other)
  Sender: FDA-Public Use
  Company Number: PT-BAXTER-2019BAX009784

PATIENT
  Age: 62 Year
  Sex: Female

DRUGS (9)
  1. PREDNISOLONE. [Suspect]
     Active Substance: PREDNISOLONE
     Indication: PRODUCT USED FOR UNKNOWN INDICATION
     Dosage: 10 MG, QD
     Route: 065
  2. AZATHIOPRINE. [Suspect]
     Active Substance: AZATHIOPRINE
     Indication: MICROSCOPIC POLYANGIITIS
     Dosage: 1 MG/KG, QD
     Route: 065
  3. DARBEPOETIN ALFA [Suspect]
     Active Substance: DARBEPOETIN ALFA
     Indication: MICROSCOPIC POLYANGIITIS
     Dosage: 40 UG, QW
     Route: 065
  4. ENDOXAN [Suspect]
     Active Substance: CYCLOPHOSPHAMIDE
     Indication: MICROSCOPIC POLYANGIITIS
     Dosage: 1.5 MG/KG, QD
     Route: 065
  5. PREDNISOLONE. [Suspect]
     Active Substance: PREDNISOLONE
     Indication: UVEITIS
     Dosage: 1.5 MG/KG, QD
     Route: 065
  6. PREDNISOLONE. [Suspect]
     Active Substance: PREDNISOLONE
     Indication: MICROSCOPIC POLYANGIITIS
     Dosage: 5 MG, QD
     Route: 065
  7. ALLOPURINOL. [Suspect]
     Active Substance: ALLOPURINOL
     Indication: UVEITIS
     Route: 065
  8. AZATHIOPRINE. [Suspect]
     Active Substance: AZATHIOPRINE
     Indication: UVEITIS
     Dosage: 2 MG/KG, QD
     Route: 065
  9. DARBEPOETIN ALFA [Suspect]
     Active Substance: DARBEPOETIN ALFA
     Indication: UVEITIS
     Route: 065

REACTIONS (4)
  - Renal impairment [Not Recovered/Not Resolved]
  - Product use in unapproved indication [Unknown]
  - Anaemia [Recovered/Resolved]
  - Drug interaction [Recovered/Resolved]
